FAERS Safety Report 8828115 (Version 1)
Quarter: 2012Q4

REPORT INFORMATION
  Report Type: 
  Country: US (occurrence: US)
  Receive Date: 20121005
  Receipt Date: 20121005
  Transmission Date: 20130627
  Serious: Yes (Hospitalization)
  Sender: FDA-Public Use
  Company Number: US-BAYER-2012-101687

PATIENT
  Age: 46 Year
  Sex: Female

DRUGS (10)
  1. YAZ [Suspect]
     Dosage: UNK
  2. OCELLA [Suspect]
     Dosage: UNK
  3. METFORMIN ER [Concomitant]
     Dosage: 500 mg 24 hour Tablets
  4. METFORMIN ER [Concomitant]
     Dosage: 750 mg 24 hours Tablets , UNK
  5. IBUPROFEN [Concomitant]
     Dosage: 800 mg, UNK
  6. AMOXICILLIN W/CLAVULANIC ACID [Concomitant]
     Dosage: 500 mg, UNK
  7. METHYLPREDNISOLONE [Concomitant]
     Dosage: 4 mg Dosepak, UNK
  8. DEXAMETHASONE [Concomitant]
     Dosage: 0.5 mg, UNK
  9. FLUOXETINE [Concomitant]
     Dosage: 20 mg, UNK
  10. FLUOXETINE [Concomitant]

REACTIONS (2)
  - Pulmonary embolism [None]
  - Deep vein thrombosis [None]
